FAERS Safety Report 19559155 (Version 1)
Quarter: 2021Q3

REPORT INFORMATION
  Report Type: Spontaneous
  Country: US (occurrence: US)
  Receive Date: 20210715
  Receipt Date: 20210715
  Transmission Date: 20211014
  Serious: No
  Sender: FDA-Public Use
  Company Number: US-BAYER-2021-175018

PATIENT

DRUGS (1)
  1. ALEVE [Suspect]
     Active Substance: NAPROXEN SODIUM
     Indication: LIGAMENT SPRAIN
     Route: 065

REACTIONS (2)
  - Wrong technique in product usage process [Unknown]
  - Drug effective for unapproved indication [Unknown]
